FAERS Safety Report 12454904 (Version 2)
Quarter: 2016Q3

REPORT INFORMATION
  Report Type: Spontaneous
  Country: US (occurrence: US)
  Receive Date: 20160610
  Receipt Date: 20160720
  Transmission Date: 20161109
  Serious: No
  Sender: FDA-Public Use
  Company Number: US-PFIZER INC-2016266584

PATIENT
  Age: 75 Year
  Sex: Female
  Weight: 59 kg

DRUGS (1)
  1. PREMARIN [Suspect]
     Active Substance: ESTROGENS, CONJUGATED
     Dosage: AT A LIGHT DOSE

REACTIONS (5)
  - Oral candidiasis [Unknown]
  - Oral pain [Unknown]
  - Oropharyngeal plaque [Unknown]
  - Oral fungal infection [Unknown]
  - Oral mucosal erythema [Unknown]
